FAERS Safety Report 24721769 (Version 1)
Quarter: 2024Q4

REPORT INFORMATION
  Report Type: Spontaneous
  Country: GB (occurrence: GB)
  Receive Date: 20241211
  Receipt Date: 20241211
  Transmission Date: 20250115
  Serious: Yes (Disabling, Other)
  Sender: ABBVIE
  Company Number: None

PATIENT
  Age: 39 Year
  Sex: Male

DRUGS (1)
  1. OFLOXACIN [Suspect]
     Active Substance: OFLOXACIN
     Indication: Chalazion
     Dosage: ONE DROP FOUR TIMES PER DAY
     Route: 047
     Dates: start: 20241017, end: 20241018

REACTIONS (9)
  - Blepharitis [Recovering/Resolving]
  - Muscular weakness [Unknown]
  - Swelling face [Unknown]
  - Vertigo [Recovered/Resolved]
  - Facial pain [Unknown]
  - Feeling drunk [Unknown]
  - Erythema [Unknown]
  - Glossitis [Recovered/Resolved]
  - Dizziness [Unknown]

NARRATIVE: CASE EVENT DATE: 20240101
